FAERS Safety Report 15245424 (Version 10)
Quarter: 2018Q4

REPORT INFORMATION
  Report Type: Report from Study
  Country: None (occurrence: PL)
  Receive Date: 20180806
  Receipt Date: 20181207
  Transmission Date: 20190204
  Serious: Yes (Hospitalization)
  Sender: FDA-Public Use
  Company Number: PL-ABBVIE-18P-129-2407306-00

PATIENT
  Age: 67 Year
  Sex: Male
  Weight: 100.8 kg

DRUGS (33)
  1. ETAMSYLATE [Concomitant]
     Active Substance: ETHAMSYLATE
     Route: 048
     Dates: start: 20180721, end: 20180802
  2. OXYCORT [Concomitant]
     Indication: SEBORRHOEA
     Route: 062
     Dates: start: 20180614, end: 20180617
  3. VENETOCLAX. [Suspect]
     Active Substance: VENETOCLAX
     Indication: PLASMA CELL MYELOMA
     Route: 048
     Dates: start: 20180605
  4. ATEZOLIZUMAB. [Suspect]
     Active Substance: ATEZOLIZUMAB
     Indication: PLASMA CELL MYELOMA
     Route: 042
     Dates: start: 20180605
  5. ETAMSYLATE [Concomitant]
     Active Substance: ETHAMSYLATE
     Indication: HAEMORRHAGE
     Route: 048
     Dates: start: 20180622, end: 20180624
  6. DALACIN T [Concomitant]
     Active Substance: CLINDAMYCIN PHOSPHATE
     Indication: SEBORRHOEA
     Route: 062
     Dates: start: 20180614, end: 20180717
  7. ENCORTON [Concomitant]
     Active Substance: PREDNISONE
     Indication: DECREASED APPETITE
     Route: 048
     Dates: start: 20180731, end: 20180802
  8. COBIMETINIB. [Suspect]
     Active Substance: COBIMETINIB
     Dosage: MOST RECENT DOSE PRIOR TO AE ON 19JUN18 AND 22JUN18. DAY 1-21 OF EACH 28 DAYS CYCLE
     Route: 048
  9. TAMSULOSINI HYDROCHLORIDUM [Concomitant]
     Indication: BENIGN PROSTATIC HYPERPLASIA
     Route: 048
     Dates: start: 2011
  10. SULFAMETHOXAZOLE, TRIMETHOPRIM [Concomitant]
     Active Substance: SULFAMETHOXAZOLE\TRIMETHOPRIM
     Indication: PROPHYLAXIS
     Route: 048
     Dates: start: 20180605
  11. VENETOCLAX. [Suspect]
     Active Substance: VENETOCLAX
     Dosage: MOST RECENT DOSE PRIOR TO AE ONSET ON 19JUN2018 AND 22JUN2018
     Route: 048
  12. FINASTERIDUM [Concomitant]
     Indication: BENIGN PROSTATIC HYPERPLASIA
     Route: 048
     Dates: start: 2011
  13. METFORMIN HYDROCHLORIDE. [Concomitant]
     Active Substance: METFORMIN HYDROCHLORIDE
     Indication: DIABETES MELLITUS
     Route: 048
     Dates: start: 2008
  14. COBIMETINIB. [Suspect]
     Active Substance: COBIMETINIB
     Indication: PLASMA CELL MYELOMA
     Dosage: DAY 1-21 OF EACH 28 DAYS CYCLE
     Route: 048
  15. HEVIRAN [Concomitant]
     Active Substance: ACYCLOVIR
     Route: 048
     Dates: start: 20180911, end: 20180913
  16. HEVIRAN [Concomitant]
     Active Substance: ACYCLOVIR
     Route: 048
     Dates: start: 20180903
  17. LOPERAMIDE HYDROCHLORIDE. [Concomitant]
     Active Substance: LOPERAMIDE HYDROCHLORIDE
     Route: 048
     Dates: start: 20180614, end: 20180717
  18. ETAMSYLATE [Concomitant]
     Active Substance: ETHAMSYLATE
     Indication: HAEMORRHAGE PROPHYLAXIS
     Route: 048
     Dates: start: 20180622, end: 20180624
  19. INSULIN GLULISINE [Concomitant]
     Active Substance: INSULIN GLULISINE
     Indication: DIABETES MELLITUS
     Route: 058
     Dates: start: 2007
  20. INSULIN GLULISINE [Concomitant]
     Active Substance: INSULIN GLULISINE
     Route: 058
     Dates: start: 2007
  21. HEVIRAN [Concomitant]
     Active Substance: ACYCLOVIR
     Indication: PROPHYLAXIS
     Route: 048
     Dates: start: 20180605
  22. HEVIRAN [Concomitant]
     Active Substance: ACYCLOVIR
     Route: 048
     Dates: start: 20180918, end: 20181002
  23. ALLOPURINOL. [Concomitant]
     Active Substance: ALLOPURINOL
     Indication: PROPHYLAXIS
     Route: 048
     Dates: start: 20180605
  24. LOPERAMIDE HYDROCHLORIDE. [Concomitant]
     Active Substance: LOPERAMIDE HYDROCHLORIDE
     Indication: DIARRHOEA
     Route: 048
     Dates: start: 20180605, end: 20180605
  25. CAPTOPRILUM [Concomitant]
     Indication: HYPERTENSION
     Route: 048
     Dates: start: 20180624, end: 20180624
  26. KALII CHLORIDUM [Concomitant]
     Indication: BLOOD POTASSIUM DECREASED
     Route: 048
     Dates: start: 20180624, end: 20180626
  27. HEVIRAN [Concomitant]
     Active Substance: ACYCLOVIR
     Indication: HERPES ZOSTER
     Route: 048
     Dates: start: 20180828, end: 20180910
  28. HEVIRAN [Concomitant]
     Active Substance: ACYCLOVIR
     Route: 042
     Dates: start: 20180913, end: 20180917
  29. INSULIN GLARGINE [Concomitant]
     Active Substance: INSULIN GLARGINE
     Indication: DIABETES MELLITUS
     Route: 058
     Dates: start: 2008
  30. LOPERAMIDE HYDROCHLORIDE. [Concomitant]
     Active Substance: LOPERAMIDE HYDROCHLORIDE
     Route: 048
     Dates: start: 20180607, end: 20180607
  31. KALIPOZ [Concomitant]
     Active Substance: POTASSIUM CHLORIDE
     Indication: HYPOKALAEMIA
     Route: 048
     Dates: start: 20180624, end: 20180626
  32. ROZEX (METRONIDAZOLE) [Concomitant]
     Active Substance: METRONIDAZOLE
     Indication: SEBORRHOEA
     Route: 062
     Dates: start: 20180614, end: 20180717
  33. ICHTHAMMOL,ZINC [Concomitant]
     Indication: SEBORRHOEA
     Route: 062
     Dates: start: 20180614, end: 20180617

REACTIONS (5)
  - Anaemia [Recovered/Resolved]
  - Anaemia [Recovered/Resolved]
  - Febrile neutropenia [Recovered/Resolved]
  - Thrombocytopenia [Not Recovered/Not Resolved]
  - Neutropenia [Recovered/Resolved]

NARRATIVE: CASE EVENT DATE: 20180605
